FAERS Safety Report 13110694 (Version 2)
Quarter: 2017Q2

REPORT INFORMATION
  Report Type: Spontaneous
  Country: JP (occurrence: JP)
  Receive Date: 20170112
  Receipt Date: 20170602
  Transmission Date: 20170830
  Serious: Yes (Death, Hospitalization)
  Sender: FDA-Public Use
  Company Number: PHJP2017JP001078

PATIENT
  Age: 78 Year
  Sex: Male
  Weight: 61 kg

DRUGS (9)
  1. SANDOSTATINA LAR IM INJECTION [Suspect]
     Active Substance: OCTREOTIDE ACETATE
     Indication: NEUROENDOCRINE TUMOUR
     Dosage: 30 MG, 4W
     Route: 030
     Dates: start: 20161130
  2. LIPACREON [Concomitant]
     Active Substance: PANCRELIPASE
     Indication: PANCREATIC ENZYMES DECREASED
     Dosage: 300 MG, TID
     Route: 048
     Dates: start: 20160805, end: 20170131
  3. FERROMIA [Concomitant]
     Active Substance: FERROUS CITRATE
     Indication: ANAEMIA
     Dosage: 50 MG, QD
     Route: 048
     Dates: start: 20160805, end: 20170131
  4. MENATETRENONE [Concomitant]
     Active Substance: MENATETRENONE
     Indication: OSTEOPOROSIS
     Dosage: 15 MG, BID
     Route: 048
     Dates: start: 20161118, end: 20170131
  5. LIVACT [Concomitant]
     Active Substance: AMINO ACIDS
     Indication: HEPATIC FUNCTION ABNORMAL
     Dosage: 4.15 MG, TID
     Route: 048
     Dates: start: 20161021, end: 20170131
  6. POSTERISAN [Concomitant]
     Active Substance: LIDOCAINE
     Indication: HAEMORRHOIDS
     Dosage: 2 G, BID
     Route: 061
     Dates: start: 20161102, end: 20170131
  7. OMEPRAZOLE. [Concomitant]
     Active Substance: OMEPRAZOLE
     Indication: GASTRITIS
     Dosage: 10 MG, QD
     Route: 048
     Dates: start: 20160805, end: 20170131
  8. AMLODIPINE [Concomitant]
     Active Substance: AMLODIPINE BESYLATE
     Indication: HYPERTENSION
     Dosage: 2.5 MG, QD
     Route: 048
     Dates: end: 20170131
  9. SANDOSTATINA LAR IM INJECTION [Suspect]
     Active Substance: OCTREOTIDE ACETATE
     Dosage: 30 MG, 4W
     Route: 030
     Dates: start: 20161228

REACTIONS (3)
  - Hypoglycaemia [Not Recovered/Not Resolved]
  - Malignant neoplasm progression [Fatal]
  - Loss of consciousness [Unknown]

NARRATIVE: CASE EVENT DATE: 20161230
